FAERS Safety Report 6824282-1 (Version None)
Quarter: 2010Q3

REPORT INFORMATION
  Report Type: 
  Country: None (occurrence: None)
  Receive Date: 20100708
  Receipt Date: 20061016
  Transmission Date: 20110219
  Serious: No
  Sender: FDA-Public Use
  Company Number: US-PFIZER INC-2006127928

PATIENT
  Sex: Male
  Weight: 58.97 kg

DRUGS (5)
  1. CHANTIX [Suspect]
     Indication: SMOKING CESSATION THERAPY
     Route: 048
     Dates: start: 20060922
  2. TRIZIVIR [Concomitant]
  3. WELLBUTRIN [Concomitant]
  4. LORAZEPAM [Concomitant]
     Indication: SLEEP DISORDER
  5. RITONAVIR [Concomitant]

REACTIONS (2)
  - ABNORMAL DREAMS [None]
  - DIARRHOEA [None]
